FAERS Safety Report 9717822 (Version 1)
Quarter: 2013Q4

REPORT INFORMATION
  Report Type: Spontaneous
  Country: US (occurrence: US)
  Receive Date: 20131125
  Receipt Date: 20131125
  Transmission Date: 20140711
  Serious: No
  Sender: FDA-Public Use
  Company Number: US-VIVUS-2012V1000245

PATIENT
  Age: 56 Year
  Sex: Female
  Weight: 77.18 kg

DRUGS (2)
  1. QSYMIA [Suspect]
     Indication: WEIGHT DECREASED
     Route: 048
     Dates: start: 20121101
  2. QSYMIA [Suspect]
     Route: 048
     Dates: start: 20121101, end: 20121101

REACTIONS (2)
  - Incorrect dose administered [Recovered/Resolved]
  - Product label confusion [Recovered/Resolved]
